FAERS Safety Report 10684633 (Version 1)
Quarter: 2014Q4

REPORT INFORMATION
  Report Type: Spontaneous
  Country: IT (occurrence: None)
  Receive Date: 20141229
  Receipt Date: 20141229
  Transmission Date: 20150529
  Serious: Yes (Other)
  Sender: FDA-Public Use
  Company Number: 2678162

PATIENT
  Age: 47 Year
  Sex: Female

DRUGS (3)
  1. (PANTOPRAZOLE) [Concomitant]
  2. (TAREG) [Concomitant]
  3. (DOCETAXEL) [Suspect]
     Active Substance: DOCETAXEL
     Indication: BREAST CANCER
     Dosage: 150 MG MILLIGRAM(S) (CYCLICAL) INTRAVENOUS (NOT OTHERWISE SPECIFIED)
     Route: 042

REACTIONS (3)
  - Cough [None]
  - Erythema [None]
  - Throat irritation [None]

NARRATIVE: CASE EVENT DATE: 20140507
